FAERS Safety Report 22272981 (Version 2)
Quarter: 2023Q2

REPORT INFORMATION
  Report Type: Report from Study
  Country: CA (occurrence: CA)
  Receive Date: 20230502
  Receipt Date: 20230618
  Transmission Date: 20230721
  Serious: Yes (Other)
  Sender: FDA-Public Use
  Company Number: CA-JNJFOC-20230448484

PATIENT
  Age: 71 Year
  Sex: Female
  Weight: 79 kg

DRUGS (1)
  1. REMICADE [Suspect]
     Active Substance: INFLIXIMAB
     Indication: Colitis ulcerative
     Dosage: THERAPY START DATE: 29/SEP/2016. V2:EXPIRY DATE: 01-SEP-2025
     Route: 041
     Dates: start: 20091216

REACTIONS (7)
  - Endometrial cancer [Not Recovered/Not Resolved]
  - Uterine dilation and curettage [Recovered/Resolved]
  - Mammogram abnormal [Unknown]
  - Vaginal haemorrhage [Recovered/Resolved]
  - Contusion [Unknown]
  - Pain in extremity [Unknown]
  - Constipation [Unknown]

NARRATIVE: CASE EVENT DATE: 20230101
